FAERS Safety Report 9520843 (Version 1)
Quarter: 2013Q1

REPORT INFORMATION
  Report Type: Spontaneous
  Country: US (occurrence: None)
  Receive Date: 20130305
  Receipt Date: 20130305
  Transmission Date: 20140127
  Serious: Yes (Hospitalization)
  Sender: FDA-Public Use
  Company Number: 163-21880-12080126

PATIENT
  Age: 82 Year
  Sex: Male

DRUGS (6)
  1. REVLIMID (LENALIDOMIDE) (CAPSULES) [Suspect]
     Indication: ACUTE MYELOID LEUKAEMIA
     Dosage: 15 MG, 21 IN 21 D, PO
     Dates: start: 20110819
  2. HYDROXYUREA (HYDROXYCARBAMIDE) (UNKNOWN) [Concomitant]
  3. BENZONATATE (BENZONATATE) (UNKNOWN) [Concomitant]
  4. FLUTICASONE (FLUTICASONE) (UNKNOWN) [Concomitant]
  5. PROPIONATE (SODIUM PROPIONATE) (UNKNOWN) [Concomitant]
  6. FLUCONAZOLE (FLUCONAZOLE) (UNKNOWN) [Concomitant]

REACTIONS (1)
  - Fungal infection [None]
